FAERS Safety Report 9725789 (Version 3)
Quarter: 2014Q2

REPORT INFORMATION
  Report Type: Report from Study
  Country: JP (occurrence: JP)
  Receive Date: 20131203
  Receipt Date: 20140404
  Transmission Date: 20141212
  Serious: Yes (Other)
  Sender: FDA-Public Use
  Company Number: JP-ASTELLAS-2012JP001840

PATIENT
  Age: 30 Year
  Sex: Female

DRUGS (34)
  1. TACROLIMUS CAPSULES [Suspect]
     Indication: LUPUS NEPHRITIS
     Dosage: 3 MG, UNKNOWN/D
     Route: 048
     Dates: start: 20070322
  2. PREDNISOLONE [Concomitant]
     Indication: LUPUS NEPHRITIS
     Dosage: 15 MG, UNKNOWN/D
     Route: 048
     Dates: start: 2007, end: 20071031
  3. PREDNISOLONE [Concomitant]
     Dosage: 14 MG, UNKNOWN/D
     Route: 048
     Dates: start: 20071101, end: 20071205
  4. PREDNISOLONE [Concomitant]
     Dosage: 13 MG, UNKNOWN/D
     Route: 048
     Dates: start: 20071206, end: 20080206
  5. PREDNISOLONE [Concomitant]
     Dosage: 12 MG, UNKNOWN/D
     Route: 048
     Dates: start: 20080207, end: 20080312
  6. PREDNISOLONE [Concomitant]
     Dosage: 11 MG, UNKNOWN/D
     Route: 048
     Dates: start: 20080313, end: 20080409
  7. PREDNISOLONE [Concomitant]
     Dosage: 10 MG, UNKNOWN/D
     Route: 048
     Dates: start: 20080410, end: 20090329
  8. PREDNISOLONE [Concomitant]
     Dosage: 20 MG, UNKNOWN/D
     Route: 048
     Dates: start: 20090330, end: 20090510
  9. PREDNISOLONE [Concomitant]
     Dosage: 15 MG, UNKNOWN/D
     Route: 048
     Dates: start: 20090511, end: 20090524
  10. PREDNISOLONE [Concomitant]
     Dosage: 50 MG, UNKNOWN/D
     Route: 048
     Dates: start: 20090525, end: 20090610
  11. PREDNISOLONE [Concomitant]
     Dosage: 40 MG, UNKNOWN/D
     Route: 048
     Dates: start: 20090611, end: 20090617
  12. PREDNISOLONE [Concomitant]
     Dosage: 35 MG, UNKNOWN/D
     Route: 048
     Dates: start: 20090618, end: 20090701
  13. PREDNISOLONE [Concomitant]
     Dosage: 30 MG, UNKNOWN/D
     Route: 048
     Dates: start: 20090702, end: 20090708
  14. PREDNISOLONE [Concomitant]
     Dosage: 27.5 MG, UNKNOWN/D
     Route: 048
     Dates: start: 20090709, end: 20090725
  15. PREDNISOLONE [Concomitant]
     Dosage: 25 MG, UNKNOWN/D
     Route: 048
     Dates: start: 20090726, end: 20090825
  16. PREDNISOLONE [Concomitant]
     Dosage: 22.5 MG, UNKNOWN/D
     Route: 048
     Dates: start: 20090826, end: 20090923
  17. PREDNISOLONE [Concomitant]
     Dosage: 20 MG, UNKNOWN/D
     Route: 048
     Dates: start: 20090924, end: 20100707
  18. PREDNISOLONE [Concomitant]
     Dosage: 17.5 MG, UNKNOWN/D
     Route: 048
     Dates: start: 20100708, end: 20101103
  19. PREDNISOLONE [Concomitant]
     Dosage: 15 MG, UNKNOWN/D
     Route: 048
     Dates: start: 20101104, end: 20110309
  20. PREDNISOLONE [Concomitant]
     Dosage: 30 MG, UNKNOWN/D
     Route: 048
     Dates: start: 20110310
  21. LIPITOR [Concomitant]
     Indication: HYPERLIPIDAEMIA
     Dosage: 5 MG, UNKNOWN/D
     Route: 048
  22. DIOVAN [Concomitant]
     Indication: LUPUS NEPHRITIS
     Dosage: 80 MG, UNKNOWN/D
     Route: 048
  23. DIOVAN [Concomitant]
     Indication: HYPERTENSION
  24. ONEALFA [Concomitant]
     Dosage: 0.5 UG, UNKNOWN/D
     Route: 048
  25. APLACE [Concomitant]
     Dosage: 200 MG, UNKNOWN/D
     Route: 048
  26. APLACE [Concomitant]
     Dosage: 100 MG, UNKNOWN/D
     Route: 048
     Dates: end: 20091119
  27. CALCIUM LACTATE [Concomitant]
     Indication: PROPHYLAXIS
     Dosage: 2 G, UNKNOWN/D
     Route: 048
  28. CALCIUM LACTATE [Concomitant]
     Dosage: 1 DF, UNKNOWN/D
     Route: 048
  29. CALCIUM LACTATE [Concomitant]
     Dosage: 1 G, UNKNOWN/D
     Route: 048
  30. HICEE [Concomitant]
     Dosage: 1000 MG, UNKNOWN/D
     Route: 048
  31. HICEE [Concomitant]
     Dosage: 500 MG, UNKNOWN/D
     Route: 048
  32. ZYLORIC [Concomitant]
     Indication: BLOOD URIC ACID INCREASED
     Dosage: 100 MG, UNKNOWN/D
     Route: 048
     Dates: start: 20090330, end: 200906
  33. ZYLORIC [Concomitant]
     Indication: PROPHYLAXIS
     Dosage: 100 MG, UNKNOWN/D
     Route: 048
     Dates: start: 200906
  34. LOXONIN [Concomitant]
     Indication: SYSTEMIC LUPUS ERYTHEMATOSUS
     Dosage: 120 MG, UNKNOWN/D
     Route: 048
     Dates: start: 20100805

REACTIONS (2)
  - Systemic lupus erythematosus [Recovered/Resolved]
  - Blood uric acid increased [Recovered/Resolved]
